FAERS Safety Report 25979514 (Version 3)
Quarter: 2025Q4

REPORT INFORMATION
  Report Type: Spontaneous
  Country: EU (occurrence: EU)
  Receive Date: 20251030
  Receipt Date: 20251118
  Transmission Date: 20260119
  Serious: Yes (Other)
  Sender: AUROBINDO
  Company Number: EU-EMA-20150325-AUTODUP-434045

PATIENT
  Sex: Female
  Weight: 2.26 kg

DRUGS (3)
  1. PREDNISOLONE [Suspect]
     Active Substance: PREDNISOLONE
     Indication: Product used for unknown indication
     Dosage: 13 MILLIGRAM
  2. AZATHIOPRINE [Suspect]
     Active Substance: AZATHIOPRINE
     Indication: Product used for unknown indication
     Dosage: 125 MILLIGRAM
  3. CYCLOSPORINE [Suspect]
     Active Substance: CYCLOSPORINE
     Indication: Product used for unknown indication

REACTIONS (6)
  - Nasopharyngitis [Unknown]
  - Apnoea [Unknown]
  - Low birth weight baby [Unknown]
  - CD4/CD8 ratio increased [Unknown]
  - Lymphocyte count decreased [Unknown]
  - Foetal exposure during pregnancy [Unknown]
